FAERS Safety Report 7248779-8 (Version None)
Quarter: 2011Q1

REPORT INFORMATION
  Report Type: 
  Country: None (occurrence: None)
  Receive Date: 20110128
  Receipt Date: 20081021
  Transmission Date: 20110831
  Serious: Yes (Other)
  Sender: FDA-Public Use
  Company Number: US-BAYER-2011-008075

PATIENT
  Sex: Male

DRUGS (3)
  1. TRASYLOL [Suspect]
     Indication: CARDIAC OPERATION
  2. TRASYLOL [Suspect]
     Indication: CORONARY ARTERY BYPASS
     Dosage: UNK
     Route: 042
  3. TRASYLOL [Suspect]
     Indication: MITRAL VALVE REPAIR

REACTIONS (9)
  - DEFORMITY [None]
  - UNEVALUABLE EVENT [None]
  - RENAL FAILURE ACUTE [None]
  - RENAL INJURY [None]
  - ANXIETY [None]
  - PAIN [None]
  - INJURY [None]
  - DISABILITY [None]
  - STRESS [None]
